FAERS Safety Report 15397833 (Version 4)
Quarter: 2019Q1

REPORT INFORMATION
  Report Type: Spontaneous
  Country: JP (occurrence: JP)
  Receive Date: 20180918
  Receipt Date: 20190308
  Transmission Date: 20190417
  Serious: Yes (Hospitalization, Other)
  Sender: FDA-Public Use
  Company Number: JP-ASTRAZENECA-2018SF08800

PATIENT
  Age: 10450 Day
  Sex: Female
  Weight: 86 kg

DRUGS (30)
  1. GENTAMICIN SULFATE. [Suspect]
     Active Substance: GENTAMICIN SULFATE
     Route: 065
     Dates: start: 20180815, end: 20180815
  2. VANCOMYCIN HYDROCHLORIDE. [Concomitant]
     Active Substance: VANCOMYCIN HYDROCHLORIDE
     Dosage: AFTER MEALS AND BEFORE BEDTIME
     Route: 048
     Dates: start: 20180903, end: 20180913
  3. IPD [Concomitant]
     Active Substance: SUPLATAST TOSILATE
     Dosage: AFTER MEALS
     Route: 048
  4. VANCOMYCIN HYDROCHLORIDE. [Concomitant]
     Active Substance: VANCOMYCIN HYDROCHLORIDE
     Route: 048
     Dates: start: 20180830, end: 20180831
  5. MONTELUKAST [Concomitant]
     Active Substance: MONTELUKAST SODIUM
     Dosage: AFTER BREAKFAST
     Route: 048
  6. FASENRA [Suspect]
     Active Substance: BENRALIZUMAB
     Indication: ASTHMA
     Dosage: 30.0MG UNKNOWN
     Route: 058
     Dates: start: 20180910, end: 20180910
  7. TEICOPLANIN [Suspect]
     Active Substance: TEICOPLANIN
     Route: 065
     Dates: start: 20180819, end: 20180819
  8. TEICOPLANIN [Suspect]
     Active Substance: TEICOPLANIN
     Route: 065
     Dates: start: 20180820
  9. FEBURIC [Concomitant]
     Active Substance: FEBUXOSTAT
     Dosage: AFTER BREAKFAST
     Route: 048
  10. SPIRIVA [Concomitant]
     Active Substance: TIOTROPIUM BROMIDE MONOHYDRATE
     Route: 055
  11. RELVAR [Concomitant]
     Active Substance: FLUTICASONE FUROATE\VILANTEROL TRIFENATATE
     Route: 055
  12. FASENRA [Suspect]
     Active Substance: BENRALIZUMAB
     Indication: ASTHMA
     Dosage: 30.0MG UNKNOWN
     Route: 058
     Dates: start: 20180714, end: 201808
  13. XYZAL [Concomitant]
     Active Substance: LEVOCETIRIZINE DIHYDROCHLORIDE
     Dosage: BEFORE BEDTIME
     Route: 048
  14. CLARITHROMYCIN. [Concomitant]
     Active Substance: CLARITHROMYCIN
     Dosage: AFTER BREAKFAST
     Route: 048
  15. PERSANTINE [Concomitant]
     Active Substance: DIPYRIDAMOLE
     Dosage: AFTER BREAKFAST AND DINNER
     Route: 048
  16. PREDONINE [Concomitant]
     Active Substance: PREDNISOLONE
     Dosage: AFTER BREAKFAST
     Route: 048
  17. BAKTAR [Concomitant]
     Active Substance: SULFAMETHOXAZOLE\TRIMETHOPRIM
     Dosage: DOSE UNKNOWN
     Route: 065
     Dates: start: 20180719
  18. HYDROCORTISONE. [Concomitant]
     Active Substance: HYDROCORTISONE
     Dosage: DOSE UNKNOWN
     Route: 065
  19. LEVOFLOXACIN. [Concomitant]
     Active Substance: LEVOFLOXACIN
     Route: 065
     Dates: start: 20180802, end: 20180803
  20. OMEPRAZOLE. [Concomitant]
     Active Substance: OMEPRAZOLE
     Dosage: AFTER DINNER
     Route: 048
  21. DAIPHEN [Concomitant]
     Active Substance: SULFAMETHOXAZOLE\TRIMETHOPRIM
     Dosage: AFTER BREAKFAST AND DINNER
     Route: 048
  22. FOSMICIN-S [Suspect]
     Active Substance: FOSFOMYCIN SODIUM
     Dosage: 1.0G UNKNOWN
     Route: 065
     Dates: start: 20180815, end: 20180815
  23. BOSMIN [Concomitant]
     Active Substance: EPINEPHRINE
     Dosage: DOSE UNKNOWN
     Route: 065
  24. DOMENAN [Concomitant]
     Dosage: AFTER BREAKFAST AND DINNER
     Route: 048
  25. EPINASTINE HYDROCHLORIDE. [Concomitant]
     Active Substance: EPINASTINE HYDROCHLORIDE
     Dosage: BEFORE BEDTIME
     Route: 048
  26. CELECOX [Concomitant]
     Active Substance: CELECOXIB
     Dosage: AFTER BREAKFAST AND DINNER
     Route: 048
  27. AMPICILLIN AND SULBACTAM [Suspect]
     Active Substance: AMPICILLIN SODIUM\SULBACTAM SODIUM
     Route: 065
     Dates: start: 20180802, end: 20180802
  28. TEICOPLANIN [Suspect]
     Active Substance: TEICOPLANIN
     Route: 065
     Dates: start: 20180816, end: 20180818
  29. METRONIDAZOLE. [Suspect]
     Active Substance: METRONIDAZOLE
     Dosage: 500.0MG UNKNOWN
     Route: 041
     Dates: start: 20180829, end: 20180829
  30. MIYA-BM [Concomitant]
     Active Substance: CLOSTRIDIUM BUTYRICUM SPORES STRAIN M-55
     Dosage: AFTER MEALS
     Route: 048

REACTIONS (24)
  - Costovertebral angle tenderness [Unknown]
  - Computerised tomogram thorax abnormal [Unknown]
  - Staphylococcal infection [Unknown]
  - Clostridium difficile infection [Recovered/Resolved]
  - Flushing [Unknown]
  - Anaphylactic reaction [Recovered/Resolved]
  - Rash [Recovered/Resolved]
  - Dyspnoea [Recovered/Resolved]
  - Hypersensitivity [Unknown]
  - Cough [Unknown]
  - Abdominal pain [Unknown]
  - Urine output decreased [Unknown]
  - Asthma [Recovered/Resolved]
  - Septic embolus [Unknown]
  - Nephrolithiasis [Unknown]
  - Wheezing [Unknown]
  - Fungal infection [Unknown]
  - Pyrexia [Unknown]
  - Urinary tract infection [Unknown]
  - Pruritus [Unknown]
  - Erythema [Unknown]
  - Device related infection [Unknown]
  - Chest pain [Unknown]
  - Diarrhoea [Unknown]

NARRATIVE: CASE EVENT DATE: 20180714
